FAERS Safety Report 9320973 (Version 1)
Quarter: 2013Q2

REPORT INFORMATION
  Report Type: Spontaneous
  Country: US (occurrence: None)
  Receive Date: 20130529
  Receipt Date: 20130529
  Transmission Date: 20140414
  Serious: Yes (Hospitalization)
  Sender: FDA-Public Use
  Company Number: None

PATIENT
  Age: 67 Year
  Sex: Male
  Weight: 79 kg

DRUGS (1)
  1. ALFA 2 INTERFERON 2B [Suspect]
     Dates: end: 20130501

REACTIONS (7)
  - Asthenia [None]
  - Fatigue [None]
  - Myalgia [None]
  - Arthritis [None]
  - Cellulitis [None]
  - Tachycardia [None]
  - Sepsis syndrome [None]
